FAERS Safety Report 23126865 (Version 2)
Quarter: 2023Q4

REPORT INFORMATION
  Report Type: Spontaneous
  Country: DE (occurrence: DE)
  Receive Date: 20231030
  Receipt Date: 20231113
  Transmission Date: 20240110
  Serious: Yes (Other)
  Sender: FDA-Public Use
  Company Number: DE-ANIPHARMA-2023-DE-000182

PATIENT
  Age: 50 Year
  Sex: Female

DRUGS (9)
  1. CANDESARTAN [Suspect]
     Active Substance: CANDESARTAN
     Indication: Product used for unknown indication
     Dosage: DOSE TEXT: UNKNOWN QUANTITY OF TABLET(S) (MAINTENANCE MEDICATION), ORAL, QUESTIONABLE EXPOSURE
     Route: 048
     Dates: start: 20230928, end: 20230928
  2. QUETIAPINE [Suspect]
     Active Substance: QUETIAPINE
     Dosage: 1 DF DAILY
     Route: 048
     Dates: start: 20230928, end: 20230928
  3. SULPIRIDE [Suspect]
     Active Substance: SULPIRIDE
     Dosage: DOSE TEXT: UNKNOWN QUANTITY OF TABLET(S) (MAINTENANCE MEDICATION), ORAL, QUESTIONABLE EXPOSURE
     Route: 065
     Dates: start: 20230928, end: 20230928
  4. CHOLECALCIFEROL [Suspect]
     Active Substance: CHOLECALCIFEROL
     Dosage: 1 DF DAILY
     Route: 065
     Dates: start: 20230928, end: 20230928
  5. ELIQUIS [Suspect]
     Active Substance: APIXABAN
     Dosage: 5 MG DAILY
     Route: 065
     Dates: start: 20230928, end: 20230928
  6. PIPAMPERONE [Suspect]
     Active Substance: PIPAMPERONE
     Dosage: 2 DF DAILY
     Route: 065
     Dates: start: 20230928, end: 20230928
  7. DULOXETINE [Suspect]
     Active Substance: DULOXETINE
     Dosage: DOSE TEXT: UNKNOWN QUANTITY OF TABLET(S) (MAINTENANCE MEDICATION), ORAL, QUESTIONABLE EXPOSURE
     Route: 048
     Dates: start: 20230928, end: 20230928
  8. VALPROATE SODIUM [Suspect]
     Active Substance: VALPROATE SODIUM
     Dosage: DOSE TEXT: UNKNOWN QUANTITY OF TABLET(S) (MAINTENANCE MEDICATION), ORAL, QUESTIONABLE EXPOSURE
     Route: 048
     Dates: start: 20230928, end: 20230928
  9. AMLODIPINE [Suspect]
     Active Substance: AMLODIPINE BESYLATE
     Dosage: DOSE TEXT: UNK, 1 ONLY
     Route: 065
     Dates: start: 20230928, end: 20230928

REACTIONS (5)
  - Suicide attempt [Unknown]
  - Syncope [Unknown]
  - Electrocardiogram QT prolonged [Unknown]
  - Hypotension [Unknown]
  - Somnolence [Unknown]

NARRATIVE: CASE EVENT DATE: 20230928
